FAERS Safety Report 8233655-4 (Version None)
Quarter: 2012Q1

REPORT INFORMATION
  Report Type: 
  Country: None (occurrence: None)
  Receive Date: 20120326
  Receipt Date: 20120320
  Transmission Date: 20120608
  Serious: Yes (Death)
  Sender: FDA-Public Use
  Company Number: PHHY2011CA74335

PATIENT
  Sex: Male

DRUGS (3)
  1. ZOMETA [Suspect]
     Indication: BASAL CELL CARCINOMA
     Dosage: 4 MG, EVERY 4 WEEKS
     Route: 042
     Dates: start: 20110623, end: 20111202
  2. CHEMOTHERAPEUTICS [Concomitant]
  3. ZOMETA [Suspect]
     Indication: LUNG NEOPLASM MALIGNANT

REACTIONS (7)
  - DEATH [None]
  - BACK PAIN [None]
  - CHEST PAIN [None]
  - COUGH [None]
  - NAUSEA [None]
  - VOMITING [None]
  - POOR QUALITY SLEEP [None]
